FAERS Safety Report 24641882 (Version 1)
Quarter: 2024Q4

REPORT INFORMATION
  Report Type: Spontaneous
  Country: US (occurrence: None)
  Receive Date: 20241119
  Receipt Date: 20241119
  Transmission Date: 20250115
  Serious: Yes (unspecified)
  Sender: Public
  Company Number: None

PATIENT
  Age: 40 Year
  Sex: Female
  Weight: 80.1 kg

DRUGS (5)
  1. LEVOCARNITINE\TIRZEPATIDE [Suspect]
     Active Substance: LEVOCARNITINE\TIRZEPATIDE
     Indication: Weight decreased
     Dosage: OTHER QUANTITY : 4 INJECTION(S);?OTHER FREQUENCY : 1 TIME A WEEK;?
     Route: 058
     Dates: start: 20241028, end: 20241028
  2. CABERGOLINE [Concomitant]
  3. pantropozale [Concomitant]
  4. fandititone [Concomitant]
  5. Women^s multi vitamin [Concomitant]

REACTIONS (4)
  - Muscle twitching [None]
  - Eye disorder [None]
  - Anxiety [None]
  - Panic reaction [None]

NARRATIVE: CASE EVENT DATE: 20241028
